FAERS Safety Report 10332223 (Version 3)
Quarter: 2014Q4

REPORT INFORMATION
  Report Type: Spontaneous
  Country: JP (occurrence: JP)
  Receive Date: 20140722
  Receipt Date: 20141016
  Transmission Date: 20150528
  Serious: Yes (Hospitalization, Disabling)
  Sender: FDA-Public Use
  Company Number: JP-ABBVIE-14P-087-1262340-00

PATIENT
  Age: 49 Year
  Sex: Male

DRUGS (4)
  1. SAWACILLIN [Suspect]
     Active Substance: AMOXICILLIN
     Indication: HELICOBACTER GASTRITIS
     Route: 048
     Dates: start: 20130821, end: 20130828
  2. NEW LULU GOLD A [Suspect]
     Active Substance: ACETAMINOPHEN\BELLADONNA ALKALOIDS\BENFOTIAMINE\BROMHEXINE HYDROCHLORIDE\CAFFEINE\CLEMASTINE FUMARATE\ DIHYDROCODEINE PHOSPHATE \METHYLEPHEDRINE HYDROCHLORIDE, DL-\TRANEXAMIC ACID
     Indication: PRODUCT USED FOR UNKNOWN INDICATION
     Route: 048
     Dates: start: 20130827, end: 20130828
  3. CLARITH TAB 200 MG [Suspect]
     Active Substance: CLARITHROMYCIN
     Indication: HELICOBACTER GASTRITIS
     Route: 048
     Dates: start: 20130821, end: 20130828
  4. NEXIUM [Suspect]
     Active Substance: ESOMEPRAZOLE MAGNESIUM
     Indication: HELICOBACTER GASTRITIS
     Route: 048
     Dates: start: 20130821, end: 20130828

REACTIONS (1)
  - Erythema multiforme [Recovered/Resolved]

NARRATIVE: CASE EVENT DATE: 20130829
